FAERS Safety Report 13048437 (Version 1)
Quarter: 2016Q4

REPORT INFORMATION
  Report Type: Spontaneous
  Country: US (occurrence: US)
  Receive Date: 20161221
  Receipt Date: 20161221
  Transmission Date: 20170207
  Serious: Yes (Death, Other)
  Sender: FDA-Public Use
  Company Number: US-CLINIGEN GROUP PLC/ CLINIGEN HEALTHCARE LTD-E2B_00002822

PATIENT
  Age: 6 Year
  Sex: Female

DRUGS (5)
  1. GANCICLOVIR - INTRAVENOUS INFUSION [Concomitant]
     Indication: CYTOMEGALOVIRUS VIRAEMIA
  2. GANCICLOVIR - INTRAVENOUS INFUSION [Concomitant]
  3. METHYLPREDNISOLONE - CREAM [Concomitant]
     Indication: GRAFT VERSUS HOST DISEASE IN SKIN
  4. CIDOFOVIR - CONCENTRATE FOR SOLUTION FOR INFUSION [Concomitant]
     Indication: CYTOMEGALOVIRUS VIRAEMIA
  5. FOSCARNET?SODIUM [Suspect]
     Active Substance: FOSCARNET SODIUM
     Indication: CYTOMEGALOVIRUS VIRAEMIA

REACTIONS (3)
  - Hydrocephalus [Unknown]
  - Pneumonia [Fatal]
  - Fungal sepsis [Fatal]
